FAERS Safety Report 8522468-1 (Version None)
Quarter: 2012Q3

REPORT INFORMATION
  Report Type: 
  Country: None (occurrence: None)
  Receive Date: 20120719
  Receipt Date: 20120713
  Transmission Date: 20120928
  Serious: Yes (Death, Life-Threatening, Other)
  Sender: FDA-Public Use
  Company Number: US-ELI_LILLY_AND_COMPANY-US201204007747

PATIENT
  Sex: Male

DRUGS (3)
  1. HUMALOG [Suspect]
     Indication: DIABETES MELLITUS
     Dosage: 12 U, EACH EVENING
  2. LANTUS [Concomitant]
     Dosage: UNK UNK, EACH MORNING
  3. HUMALOG [Suspect]
     Dosage: 12 U, EACH EVENING

REACTIONS (7)
  - SEPSIS [None]
  - INTESTINAL OBSTRUCTION [None]
  - COMA [None]
  - DYSPHONIA [None]
  - BLOOD GLUCOSE INCREASED [None]
  - MULTI-ORGAN FAILURE [None]
  - INTESTINAL GANGRENE [None]
